FAERS Safety Report 7928658-0 (Version None)
Quarter: 2011Q4

REPORT INFORMATION
  Report Type: 
  Country: None (occurrence: None)
  Receive Date: 20111118
  Receipt Date: 20111107
  Transmission Date: 20120403
  Serious: Yes (Other)
  Sender: FDA-Public Use
  Company Number: GB-MYLANLABS-2011S1022930

PATIENT
  Age: 63 Year
  Sex: Female
  Weight: 60 kg

DRUGS (3)
  1. COD LIVER OIL [Concomitant]
     Indication: ARTHRALGIA
     Route: 048
     Dates: start: 20010101
  2. LEVOTHYROXINE SODIUM [Concomitant]
     Indication: HYPOTHYROIDISM
     Route: 048
     Dates: start: 20070101
  3. TERBINAFINE HCL [Suspect]
     Indication: FUNGAL INFECTION
     Route: 048

REACTIONS (2)
  - MENTAL DISORDER [None]
  - ERYTHEMA MULTIFORME [None]
